FAERS Safety Report 4801700-1 (Version None)
Quarter: 2005Q4

REPORT INFORMATION
  Report Type: 
  Country: None (occurrence: None)
  Receive Date: 20051018
  Receipt Date: 20051012
  Transmission Date: 20060501
  Serious: Yes (Hospitalization)
  Sender: FDA-Public Use
  Company Number: JP-JPN-A20052443

PATIENT
  Sex: Male
  Weight: 2.8 kg

DRUGS (6)
  1. PAXIL [Suspect]
     Dosage: 10MG TWICE PER DAY
     Dates: end: 20051011
  2. DEPAS [Concomitant]
  3. SOLANAX [Concomitant]
  4. NITRAZEPAM [Concomitant]
  5. RAVONAL [Concomitant]
  6. DORMICUM [Concomitant]

REACTIONS (3)
  - DRUG EXPOSURE DURING PREGNANCY [None]
  - NEONATAL ASPHYXIA [None]
  - SOMNOLENCE NEONATAL [None]
